FAERS Safety Report 5563798-5 (Version None)
Quarter: 2007Q4

REPORT INFORMATION
  Report Type: 
  Country: None (occurrence: None)
  Receive Date: 20071217
  Receipt Date: 20071025
  Transmission Date: 20080405
  Serious: Yes (Hospitalization)
  Sender: FDA-Public Use
  Company Number: JP-SANOFI-SYNTHELABO-A01200712331

PATIENT
  Age: 44 Year
  Sex: Male

DRUGS (5)
  1. AMOXAPINE [Suspect]
     Indication: MAJOR DEPRESSION
     Dosage: 75 MG
     Route: 065
  2. BROTIZOLAM [Suspect]
     Indication: DRUG USE FOR UNKNOWN INDICATION
     Dosage: UNK
     Route: 065
  3. BROTIZOLAM [Suspect]
     Dosage: UNK
     Route: 065
  4. MYSLEE [Suspect]
     Indication: INSOMNIA
     Dosage: 10 MG
     Route: 048
  5. MYSLEE [Suspect]
     Indication: DRUG ABUSE
     Dosage: 10 MG
     Route: 048

REACTIONS (5)
  - DRUG ABUSE [None]
  - EATING DISORDER [None]
  - GAIT DISTURBANCE [None]
  - LAZINESS [None]
  - NEUROLEPTIC MALIGNANT SYNDROME [None]
